FAERS Safety Report 18036365 (Version 3)
Quarter: 2020Q3

REPORT INFORMATION
  Report Type: Report from Study
  Country: DE (occurrence: DE)
  Receive Date: 20200717
  Receipt Date: 20200918
  Transmission Date: 20201103
  Serious: Yes (Disabling, Other)
  Sender: FDA-Public Use
  Company Number: DE-AMGEN-DEUCT2020112107

PATIENT
  Sex: Male
  Weight: 73 kg

DRUGS (26)
  1. ASPIRIN PROTECT [Concomitant]
     Active Substance: ASPIRIN
     Dosage: 100 MILLIGRAM, 1X/DAY
     Route: 048
  2. COLCHICUM [Concomitant]
     Active Substance: COLCHICINE
     Indication: CHONDROCALCINOSIS PYROPHOSPHATE
     Dosage: 0.5?01 MILLIGRAM, 1X/DAY
     Route: 048
  3. ESOMEPRAZOL [ESOMEPRAZOLE] [Concomitant]
     Active Substance: ESOMEPRAZOLE
     Indication: PROPHYLAXIS
     Dosage: 40 MILLIGRAM, 1X/DAY
     Route: 048
  4. VIGANTOL [COLECALCIFEROL] [Concomitant]
     Active Substance: CHOLECALCIFEROL
     Indication: PROPHYLAXIS
     Dosage: 1000 INTERNATIONAL UNIT,  1X/DAY
     Route: 048
  5. HUMIRA [Suspect]
     Active Substance: ADALIMUMAB
     Indication: PSORIASIS
     Dosage: 40 MILLIGRAM, EVERY 2 WEEKS
     Route: 058
     Dates: start: 20130429, end: 201712
  6. METHOTREXATE SODIUM. [Suspect]
     Active Substance: METHOTREXATE SODIUM
     Indication: PSORIATIC ARTHROPATHY
     Dosage: 5 MILLIGRAM, UNK
     Route: 058
     Dates: start: 1980, end: 2017
  7. DUROGESIC [Concomitant]
     Active Substance: FENTANYL
     Indication: PAIN
     Dosage: 7.5 UG/H
     Route: 062
  8. METHOTREXATE SODIUM. [Suspect]
     Active Substance: METHOTREXATE SODIUM
     Indication: PSORIASIS
     Dosage: 7.5 MILLIGRAM, WEEKLY
     Route: 058
     Dates: start: 20180407
  9. METOPROLOL. [Concomitant]
     Active Substance: METOPROLOL
     Dosage: 50 MILLIGRAM, UNK (FREQUENCY?0.5?1 DAY)
     Route: 048
  10. OPIPRAM [Concomitant]
     Active Substance: OPIPRAMOL HYDROCHLORIDE
     Indication: SLEEP DISORDER
     Dosage: 50 MILLIGRAM, UNK (0.5 AT EVENING, 1 AT NIGHT)
     Route: 048
  11. DECORTIN H [Concomitant]
     Active Substance: PREDNISOLONE
     Dosage: 7.5 MILLIGRAM, 1X/DAY
     Route: 048
  12. ALLOPURINOL. [Concomitant]
     Active Substance: ALLOPURINOL
     Indication: BLOOD URIC ACID INCREASED
     Dosage: 300 MILLIGRAM, FREQUENCY?0.5 IN 1 DAY
     Route: 048
  13. METOPROLOL. [Concomitant]
     Active Substance: METOPROLOL
     Indication: BLOOD PRESSURE MANAGEMENT
     Dosage: 100 MG, 1X/DAY
     Route: 048
  14. HCT [Concomitant]
     Active Substance: HYDROCHLOROTHIAZIDE
     Indication: BLOOD PRESSURE MANAGEMENT
     Dosage: 1 UNK, DAILY
     Route: 048
  15. DECORTIN H [Concomitant]
     Active Substance: PREDNISOLONE
     Indication: PSORIATIC ARTHROPATHY
     Dosage: 5 MILLIGRAM, 1X/DAY
     Route: 048
     Dates: start: 20180425
  16. SIMVAHEXAL [Concomitant]
     Active Substance: SIMVASTATIN
     Dosage: 1 UNK, DAILY
     Route: 048
  17. TAMSULOSIN [Concomitant]
     Active Substance: TAMSULOSIN
     Indication: PROSTATOMEGALY
     Dosage: 0.4 MILLIGRAM, 1X/DAY
     Route: 048
  18. VALSARTAN. [Concomitant]
     Active Substance: VALSARTAN
     Indication: BLOOD PRESSURE MANAGEMENT
     Dosage: 160 MILLIGRAM, 1X/DAY
  19. FOLIC ACID. [Concomitant]
     Active Substance: FOLIC ACID
     Indication: DRUG THERAPY
     Dosage: 5 MILLIGRAM, WEEKLY
     Route: 048
  20. ETANERCEPT [Suspect]
     Active Substance: ETANERCEPT
     Indication: PSORIASIS
     Dosage: 50 MILLIGRAM, WEEKLY
     Route: 058
     Dates: start: 201803
  21. ETANERCEPT [Suspect]
     Active Substance: ETANERCEPT
     Indication: PSORIATIC ARTHROPATHY
     Dosage: UNK
     Route: 065
  22. COLCHICUM [Concomitant]
     Active Substance: COLCHICINE
     Dosage: 1 MG, 1X/DAY
     Route: 048
  23. OPIPRAM [Concomitant]
     Active Substance: OPIPRAMOL HYDROCHLORIDE
     Indication: DEPRESSION
     Dosage: UNK
  24. HUMIRA [Suspect]
     Active Substance: ADALIMUMAB
     Dosage: 40 MILLIGRAM, EVERY 2 WEEKS
     Route: 058
     Dates: end: 20180314
  25. BEN?U?RON [Concomitant]
     Active Substance: ACETAMINOPHEN
     Indication: PAIN
     Dosage: 1000 MILLIGRAM, 1X/DAY
     Route: 048
  26. ESCITALOPRAM [Concomitant]
     Active Substance: ESCITALOPRAM OXALATE
     Indication: DEPRESSION
     Dosage: 20 DOSAGE FORM, UNK (10 GTT)
     Route: 048

REACTIONS (17)
  - Neoplasm [Unknown]
  - Insomnia [Not Recovered/Not Resolved]
  - Joint swelling [Unknown]
  - Fatigue [Not Recovered/Not Resolved]
  - Condition aggravated [Unknown]
  - Arthralgia [Unknown]
  - Arthropathy [Not Recovered/Not Resolved]
  - Musculoskeletal stiffness [Recovered/Resolved]
  - Psoriasis [Unknown]
  - Pain [Unknown]
  - Musculoskeletal discomfort [Unknown]
  - Drug ineffective [Unknown]
  - Weight decreased [Recovered/Resolved]
  - Initial insomnia [Not Recovered/Not Resolved]
  - Night sweats [Unknown]
  - Panic attack [Unknown]
  - Rash [Unknown]

NARRATIVE: CASE EVENT DATE: 201606
